FAERS Safety Report 5233592-3 (Version None)
Quarter: 2007Q1

REPORT INFORMATION
  Report Type: 
  Country: None (occurrence: None)
  Receive Date: 20070208
  Receipt Date: 20070129
  Transmission Date: 20070707
  Serious: Yes (Hospitalization)
  Sender: FDA-Public Use
  Company Number: GBWYE402929JAN07

PATIENT
  Sex: Female

DRUGS (4)
  1. ENBREL [Suspect]
     Indication: DRUG USE FOR UNKNOWN INDICATION
     Route: 058
     Dates: start: 20040701
  2. PREDNISOLONE [Concomitant]
     Dosage: 1MG DAILY FREQUENCY UNKNOWN
  3. VOLTAREN [Concomitant]
     Dosage: 100MG DAILY FREQUENCY UNKNOWN
  4. LANSOPRAZOLE [Concomitant]
     Dosage: 30MG DAILY FREQUENCY UNKNOWN

REACTIONS (1)
  - MYOCARDIAL INFARCTION [None]
